FAERS Safety Report 9269146 (Version 2)
Quarter: 2013Q3

REPORT INFORMATION
  Report Type: Spontaneous
  Country: US (occurrence: US)
  Receive Date: 20130503
  Receipt Date: 20130903
  Transmission Date: 20140515
  Serious: No
  Sender: FDA-Public Use
  Company Number: US-009507513-1305USA000535

PATIENT
  Sex: Female
  Weight: 59.86 kg

DRUGS (5)
  1. NUVARING [Suspect]
     Dosage: UNK
     Route: 067
     Dates: start: 2009
  2. NUVARING [Suspect]
     Dosage: UNK
     Route: 067
     Dates: start: 2013, end: 20130426
  3. ESTRACE [Concomitant]
  4. DIFLUCAN [Concomitant]
  5. METROGEL (METRONIDAZOLE) [Concomitant]

REACTIONS (2)
  - Vaginal laceration [Not Recovered/Not Resolved]
  - Overdose [Unknown]
